FAERS Safety Report 9190488 (Version 1)
Quarter: 2013Q1

REPORT INFORMATION
  Report Type: Spontaneous
  Country: AU (occurrence: AU)
  Receive Date: 20130326
  Receipt Date: 20130326
  Transmission Date: 20140127
  Serious: Yes (Other)
  Sender: FDA-Public Use
  Company Number: AU-JNJFOC-20130310507

PATIENT
  Sex: Female

DRUGS (1)
  1. NICORETTE QUICKMIST [Suspect]
     Indication: SMOKING CESSATION THERAPY
     Dosage: SIZE OF CONTAINER -150 SPRAYS 13.2ML
     Route: 048

REACTIONS (2)
  - Biliary colic [Unknown]
  - Malaise [Unknown]
